FAERS Safety Report 6613628-5 (Version None)
Quarter: 2010Q1

REPORT INFORMATION
  Report Type: 
  Country: None (occurrence: None)
  Receive Date: 20100224
  Receipt Date: 20090218
  Transmission Date: 20100710
  Serious: Yes (Other)
  Sender: FDA-Public Use
  Company Number: WAES 0902USA03103

PATIENT
  Age: 60 Year
  Sex: Female

DRUGS (3)
  1. ZOCOR [Suspect]
     Indication: BLOOD CHOLESTEROL
     Dosage: PO
     Route: 048
  2. ZOCOR [Suspect]
     Dosage: 40 MG/DAILY/PO
     Route: 048
  3. ADDERALL XR 10 [Concomitant]

REACTIONS (2)
  - PANCREATITIS [None]
  - WRONG TECHNIQUE IN DRUG USAGE PROCESS [None]
